FAERS Safety Report 9791710 (Version 2)
Quarter: 2014Q2

REPORT INFORMATION
  Report Type: Spontaneous
  Country: US (occurrence: US)
  Receive Date: 20140102
  Receipt Date: 20140619
  Transmission Date: 20141212
  Serious: Yes (Hospitalization)
  Sender: FDA-Public Use
  Company Number: US-BAYER-2013-159719

PATIENT
  Age: 38 Year
  Sex: Female
  Weight: 86.2 kg

DRUGS (9)
  1. YASMIN [Suspect]
     Dosage: UNK
  2. IBUPROFEN [Concomitant]
  3. ULTRAM [Concomitant]
  4. MORPHINE [Concomitant]
  5. VIACTIV [CALCIUM] [Concomitant]
  6. TUMS [CALCIUM CARBONATE] [Concomitant]
  7. ROLAIDS [CALCIUM CARBONATE,MAGNESIUM HYDROXIDE] [Concomitant]
  8. CALCIUM [Concomitant]
  9. LORATADINE [Concomitant]

REACTIONS (2)
  - Pulmonary embolism [None]
  - Deep vein thrombosis [Recovered/Resolved]
